FAERS Safety Report 6037543-3 (Version None)
Quarter: 2009Q1

REPORT INFORMATION
  Report Type: 
  Country: None (occurrence: None)
  Receive Date: 20090114
  Receipt Date: 20090106
  Transmission Date: 20090719
  Serious: Yes (Hospitalization)
  Sender: FDA-Public Use
  Company Number: US-ELI_LILLY_AND_COMPANY-US200901000736

PATIENT
  Sex: Female
  Weight: 74.83 kg

DRUGS (11)
  1. BYETTA [Suspect]
     Indication: TYPE 2 DIABETES MELLITUS
     Dosage: 5 UG, 2/D
     Route: 058
     Dates: start: 20080101
  2. BYETTA [Suspect]
     Dosage: 10 UG, 2/D
     Route: 058
     Dates: start: 20080201, end: 20080101
  3. BYETTA [Suspect]
     Dosage: 5 UG, 2/D
     Route: 058
     Dates: start: 20070901, end: 20080201
  4. AMARYL [Concomitant]
     Indication: TYPE 2 DIABETES MELLITUS
     Dosage: 6 MG, DAILY (1/D)
     Route: 048
     Dates: start: 20090101
  5. ASPIRIN [Concomitant]
     Indication: PROPHYLAXIS
     Dosage: UNK, DAILY (1/D)
     Route: 048
     Dates: start: 20080101
  6. MAXZIDE [Concomitant]
     Indication: FLUID RETENTION
     Dosage: UNK, DAILY (1/D)
     Route: 048
  7. EFFEXOR XR [Concomitant]
     Indication: DEPRESSION
     Dosage: 150 MG, UNKNOWN
     Route: 048
  8. SOMA [Concomitant]
     Indication: BACK PAIN
     Dosage: 350 MG, 3/D
     Route: 048
  9. LIPITOR [Concomitant]
     Indication: BLOOD CHOLESTEROL
     Dosage: 40 MG, EACH EVENING
     Route: 048
  10. MULTI-VITAMIN [Concomitant]
     Dosage: UNK, EACH EVENING
  11. TYLENOL (CAPLET) [Concomitant]
     Indication: INSOMNIA
     Dosage: UNK, EACH EVENING
     Route: 048

REACTIONS (15)
  - BLOOD GLUCOSE INCREASED [None]
  - CHILLS [None]
  - DECREASED APPETITE [None]
  - DIZZINESS [None]
  - LIMB INJURY [None]
  - LOCALISED INFECTION [None]
  - MEMORY IMPAIRMENT [None]
  - NAUSEA [None]
  - NEUROPATHY PERIPHERAL [None]
  - PYREXIA [None]
  - RED BLOOD CELL SEDIMENTATION RATE INCREASED [None]
  - SKIN DISCOLOURATION [None]
  - SKIN ODOUR ABNORMAL [None]
  - VOMITING [None]
  - WEIGHT DECREASED [None]
